FAERS Safety Report 25852005 (Version 1)
Quarter: 2025Q3

REPORT INFORMATION
  Report Type: Spontaneous
  Country: EU (occurrence: EU)
  Receive Date: 20250926
  Receipt Date: 20250926
  Transmission Date: 20251021
  Serious: Yes (Disabling, Other)
  Sender: pharmaAND
  Company Number: None

PATIENT
  Age: 49 Year
  Sex: Female

DRUGS (1)
  1. PEGASYS [Suspect]
     Active Substance: PEGINTERFERON ALFA-2A
     Indication: Polycythaemia vera
     Dates: start: 20241216, end: 20250616

REACTIONS (3)
  - Retinal vein occlusion [Recovering/Resolving]
  - Retinopathy [Recovering/Resolving]
  - Macular degeneration [Recovering/Resolving]

NARRATIVE: CASE EVENT DATE: 20250101
